FAERS Safety Report 9785736 (Version 1)
Quarter: 2013Q4

REPORT INFORMATION
  Report Type: Spontaneous
  Country: CZ (occurrence: None)
  Receive Date: 20131224
  Receipt Date: 20131224
  Transmission Date: 20140711
  Serious: Yes (Other)
  Sender: FDA-Public Use
  Company Number: AUR-APL-2013-10459

PATIENT
  Sex: Male

DRUGS (5)
  1. GABAPENTIN (GABAPENTIN) [Suspect]
     Indication: NEUROPATHY PERIPHERAL
  2. DOCETAXEL (DOCETAXEL) [Suspect]
     Indication: CHEMOTHERAPY
     Dosage: 75 MG/M2 WITH A 3-WEEK INTERVAL, UNKNOWN
     Dates: end: 201203
  3. AMITRIPTYLINE (AMITRIPTYLINE) [Suspect]
     Indication: NEUROPATHY PERIPHERAL
  4. PREDNISOLONE (PREDNISOLONE) [Concomitant]
  5. ZOLEDRONIC ACID (ZOLEDRONIC ACID) [Concomitant]

REACTIONS (13)
  - Neuropathy peripheral [None]
  - Pain in extremity [None]
  - Paraesthesia [None]
  - Paraesthesia [None]
  - Muscular weakness [None]
  - Body temperature fluctuation [None]
  - Pain [None]
  - Visual impairment [None]
  - Quality of life decreased [None]
  - Gastrointestinal disorder [None]
  - Hypertension [None]
  - Orthostatic hypotension [None]
  - Depression [None]
